FAERS Safety Report 13496132 (Version 4)
Quarter: 2017Q3

REPORT INFORMATION
  Report Type: Spontaneous
  Country: JP (occurrence: JP)
  Receive Date: 20170428
  Receipt Date: 20170824
  Transmission Date: 20171127
  Serious: Yes (Life-Threatening, Hospitalization, Other)
  Sender: FDA-Public Use
  Company Number: JP-009507513-1704JPN001967J

PATIENT
  Age: 9 Year
  Sex: Female
  Weight: 28 kg

DRUGS (11)
  1. MITOXANTRONE [Concomitant]
     Active Substance: MITOXANTRONE HYDROCHLORIDE
     Dosage: 5.2 MG, UNK
     Route: 051
     Dates: start: 20170311, end: 20170314
  2. TAKEPRON [Concomitant]
     Active Substance: LANSOPRAZOLE
     Dosage: 30 MG, UNK
     Route: 051
     Dates: start: 20170313, end: 20170320
  3. MEROPENEM. [Concomitant]
     Active Substance: MEROPENEM
     Dosage: 3 G, UNK
     Route: 051
     Dates: start: 20170317, end: 20170327
  4. GRANISETRON [Concomitant]
     Active Substance: GRANISETRON
     Indication: PROPHYLAXIS
     Dosage: 3 G, UNK
     Route: 051
     Dates: start: 20170303, end: 20170315
  5. CANCIDAS [Suspect]
     Active Substance: CASPOFUNGIN ACETATE
     Indication: FEBRILE NEUTROPENIA
     Dosage: 50 MG, QD
     Route: 041
     Dates: start: 20170315, end: 20170328
  6. FLUCONAZOLE. [Concomitant]
     Active Substance: FLUCONAZOLE
     Indication: FEBRILE NEUTROPENIA
     Dosage: 100 MG, UNK
     Route: 048
     Dates: start: 20170303, end: 20170313
  7. NEOPHAGEN [Concomitant]
     Active Substance: GLYCYRRHIZIN
     Dosage: 20 ML, UNK
     Route: 051
     Dates: start: 20170310, end: 20170314
  8. FIRSTCIN [Concomitant]
     Active Substance: CEFOZOPRAN HYDROCHLORIDE
     Dosage: 3 G, UNK
     Route: 051
     Dates: start: 20170314, end: 20170317
  9. CYTARABINE. [Concomitant]
     Active Substance: CYTARABINE
     Dosage: 210 MG, UNK
     Route: 051
     Dates: start: 20170311, end: 20170314
  10. DEXART [Concomitant]
     Active Substance: DEXAMETHASONE SODIUM PHOSPHATE
     Indication: PROPHYLAXIS
     Dosage: 3.3 MG, UNK
     Route: 051
     Dates: start: 20170306, end: 20170315
  11. CANCIDAS [Suspect]
     Active Substance: CASPOFUNGIN ACETATE
     Indication: FEBRILE NEUTROPENIA
     Dosage: 70 MG, QD
     Route: 041
     Dates: start: 20170314, end: 20170314

REACTIONS (4)
  - Febrile neutropenia [Recovered/Resolved]
  - Lipase increased [Recovered/Resolved]
  - Enterocolitis [Recovered/Resolved]
  - Arthralgia [Recovered/Resolved]

NARRATIVE: CASE EVENT DATE: 20170314
